FAERS Safety Report 7567921-2 (Version None)
Quarter: 2011Q2

REPORT INFORMATION
  Report Type: 
  Country: None (occurrence: None)
  Receive Date: 20110616
  Receipt Date: 20110606
  Transmission Date: 20111010
  Serious: Yes (Other)
  Sender: FDA-Public Use
  Company Number: 2011P1006994

PATIENT
  Age: 2 Year
  Sex: Male

DRUGS (1)
  1. PHENYTOIN [Suspect]
     Indication: HEAD INJURY

REACTIONS (16)
  - GAIT DISTURBANCE [None]
  - HYPERREFLEXIA [None]
  - GRAND MAL CONVULSION [None]
  - HYPOKINESIA [None]
  - ENCEPHALITIS [None]
  - ALTERED STATE OF CONSCIOUSNESS [None]
  - MUSCULOSKELETAL STIFFNESS [None]
  - ANTIDEPRESSANT DRUG LEVEL ABOVE THERAPEUTIC [None]
  - PYREXIA [None]
  - VOMITING [None]
  - NYSTAGMUS [None]
  - EXTENSOR PLANTAR RESPONSE [None]
  - TOXICITY TO VARIOUS AGENTS [None]
  - APHASIA [None]
  - LETHARGY [None]
  - INCORRECT DOSE ADMINISTERED [None]
